FAERS Safety Report 4902925-7 (Version None)
Quarter: 2006Q1

REPORT INFORMATION
  Report Type: 
  Country: None (occurrence: None)
  Receive Date: 20060201
  Receipt Date: 20051130
  Transmission Date: 20060701
  Serious: No
  Sender: FDA-Public Use
  Company Number: 2005PV005131

PATIENT
  Age: 58 Year
  Sex: Female
  Weight: 117.9352 kg

DRUGS (4)
  1. BYETTA [Suspect]
     Indication: DIABETES MELLITUS NON-INSULIN-DEPENDENT
     Dosage: 5 MCG BID SC ; 10 MCG BID SC
     Route: 058
     Dates: start: 20050901, end: 20051001
  2. BYETTA [Suspect]
     Indication: DIABETES MELLITUS NON-INSULIN-DEPENDENT
     Dosage: 5 MCG BID SC ; 10 MCG BID SC
     Route: 058
     Dates: start: 20051001
  3. METFORMIN HYDROCHLORIDE [Concomitant]
  4. LEVAQUIN [Concomitant]

REACTIONS (9)
  - ABDOMINAL DISCOMFORT [None]
  - ABDOMINAL DISTENSION [None]
  - CONDITION AGGRAVATED [None]
  - DECREASED APPETITE [None]
  - FATIGUE [None]
  - FEELING COLD [None]
  - GASTROOESOPHAGEAL REFLUX DISEASE [None]
  - NAUSEA [None]
  - WEIGHT DECREASED [None]
